FAERS Safety Report 22517309 (Version 1)
Quarter: 2023Q2

REPORT INFORMATION
  Report Type: Spontaneous
  Country: US (occurrence: US)
  Receive Date: 20230603
  Receipt Date: 20230603
  Transmission Date: 20230721
  Serious: Yes (Other)
  Sender: FDA-Public Use
  Company Number: US-Shilpa Medicare Limited-SML-US-2023-00711

PATIENT
  Age: 15 Year
  Sex: Female

DRUGS (3)
  1. GEMCITABINE [Suspect]
     Active Substance: GEMCITABINE
     Indication: Renal cell carcinoma
     Dosage: DAYS 1, 8 AND 15
  2. CISPLATIN [Suspect]
     Active Substance: CISPLATIN
     Indication: Renal cell carcinoma
     Dosage: DAYS 1
  3. PACLITAXEL [Suspect]
     Active Substance: PACLITAXEL
     Indication: Renal cell carcinoma
     Dosage: DAYS 1,8 AND 15

REACTIONS (6)
  - Clostridium difficile infection [Unknown]
  - Dehydration [Unknown]
  - Hyponatraemia [Unknown]
  - Hypokalaemia [Unknown]
  - Hypomagnesaemia [Unknown]
  - Thrombocytopenia [Recovered/Resolved]
